FAERS Safety Report 9175387 (Version 1)
Quarter: 2013Q1

REPORT INFORMATION
  Report Type: Spontaneous
  Country: CN (occurrence: CN)
  Receive Date: 20130320
  Receipt Date: 20130320
  Transmission Date: 20140127
  Serious: Yes (Other)
  Sender: FDA-Public Use
  Company Number: CN-ROCHE-1203631

PATIENT
  Age: 75 Year
  Sex: Female

DRUGS (2)
  1. XELODA [Suspect]
     Indication: GASTRIC CANCER
     Route: 048
     Dates: start: 201204, end: 201212
  2. XELODA [Suspect]
     Indication: METASTASES TO LYMPH NODES

REACTIONS (2)
  - Metastases to lung [Not Recovered/Not Resolved]
  - Metastases to uterus [Not Recovered/Not Resolved]
